FAERS Safety Report 6757838-5 (Version None)
Quarter: 2010Q2

REPORT INFORMATION
  Report Type: 
  Country: None (occurrence: None)
  Receive Date: 20100607
  Receipt Date: 20100526
  Transmission Date: 20101027
  Serious: Yes (Other)
  Sender: FDA-Public Use
  Company Number: PHHY2010NO33872

PATIENT
  Sex: Male

DRUGS (3)
  1. ZOMETA [Suspect]
     Indication: PROSTATE CANCER
     Dosage: 4 MG, QMO
     Route: 040
     Dates: start: 20090101, end: 20100101
  2. ZOLADEX [Concomitant]
     Indication: PROSTATE CANCER
  3. TAXOTERE [Concomitant]
     Indication: PROSTATE CANCER

REACTIONS (3)
  - BONE LESION [None]
  - OSTEONECROSIS OF JAW [None]
  - PURULENT DISCHARGE [None]
